FAERS Safety Report 23749401 (Version 1)
Quarter: 2024Q2

REPORT INFORMATION
  Report Type: Spontaneous
  Country: CZ (occurrence: CZ)
  Receive Date: 20240416
  Receipt Date: 20240416
  Transmission Date: 20240716
  Serious: Yes (Hospitalization, Disabling, Other)
  Sender: FDA-Public Use
  Company Number: None

PATIENT
  Age: 27 Year
  Sex: Female
  Weight: 59 kg

DRUGS (5)
  1. OPDIVO [Suspect]
     Active Substance: NIVOLUMAB
     Indication: Malignant melanoma
     Dosage: FLAT DOSE 480MG EVERY 28 DAYS
     Route: 042
     Dates: start: 20230920, end: 20240306
  2. PREDNISONE [Concomitant]
     Active Substance: PREDNISONE
     Dosage: 3-3-0, OF 20MG TABLETS
     Route: 048
  3. BROMFENAC SODIUM [Concomitant]
     Active Substance: BROMFENAC SODIUM
     Indication: Product used for unknown indication
     Dosage: 0.9MG/ML, 1-0-1, SINGLE DROP IN BOTH EYES
     Route: 047
  4. DEXAMETHASONE [Concomitant]
     Active Substance: DEXAMETHASONE
     Indication: Product used for unknown indication
     Dosage: 5 TIMES A DAY, ONE DROP IN BOTH EYES
     Route: 047
  5. OMEPRAZOLE [Concomitant]
     Active Substance: OMEPRAZOLE
     Indication: Product used for unknown indication
     Dosage: BEFORE MEAL, 1-0-1
     Route: 048

REACTIONS (10)
  - Retinal oedema [Not Recovered/Not Resolved]
  - Iris adhesions [Not Recovered/Not Resolved]
  - Papilloedema [Not Recovered/Not Resolved]
  - Visual impairment [Not Recovered/Not Resolved]
  - Iridocyclitis [Not Recovered/Not Resolved]
  - Cataract [Not Recovered/Not Resolved]
  - Serous retinal detachment [Not Recovered/Not Resolved]
  - Myositis [Not Recovered/Not Resolved]
  - Scleritis [Not Recovered/Not Resolved]
  - Blindness [Not Recovered/Not Resolved]

NARRATIVE: CASE EVENT DATE: 20240315
